FAERS Safety Report 5684679-2 (Version None)
Quarter: 2008Q1

REPORT INFORMATION
  Report Type: 
  Country: None (occurrence: None)
  Receive Date: 20080328
  Receipt Date: 20070606
  Transmission Date: 20080703
  Serious: Yes (Life-Threatening, Hospitalization, Disabling)
  Sender: FDA-Public Use
  Company Number: US-BRISTOL-MYERS SQUIBB COMPANY-13806070

PATIENT
  Age: 76 Year
  Sex: Female

DRUGS (8)
  1. ERBITUX [Suspect]
     Dates: start: 20070412, end: 20070412
  2. BENADRYL [Concomitant]
     Dates: start: 20070412, end: 20070412
  3. ALOXI [Concomitant]
  4. HEPARIN [Concomitant]
  5. RANITIDINE [Concomitant]
  6. PIPERAZOLIM + TAZOBACTAM [Concomitant]
  7. MORPHINE [Concomitant]
  8. ESOMEPRAZOLE MAGNESIUM [Concomitant]

REACTIONS (7)
  - BLOOD PRESSURE INCREASED [None]
  - DYSPNOEA [None]
  - FLUSHING [None]
  - HEART RATE INCREASED [None]
  - HYPERSENSITIVITY [None]
  - OXYGEN SATURATION DECREASED [None]
  - WHEEZING [None]
